FAERS Safety Report 5627957-5 (Version None)
Quarter: 2008Q1

REPORT INFORMATION
  Report Type: 
  Country: None (occurrence: None)
  Receive Date: 20080215
  Receipt Date: 20080207
  Transmission Date: 20080703
  Serious: Yes (Other)
  Sender: FDA-Public Use
  Company Number: IT-TEVA-167309ISR

PATIENT
  Sex: Male

DRUGS (1)
  1. CISPLATIN [Suspect]

REACTIONS (1)
  - THROMBOCYTHAEMIA [None]
